FAERS Safety Report 9929505 (Version 2)
Quarter: 2014Q1

REPORT INFORMATION
  Report Type: Spontaneous
  Country: GB (occurrence: GB)
  Receive Date: 20140227
  Receipt Date: 20140305
  Transmission Date: 20141002
  Serious: Yes (Other)
  Sender: FDA-Public Use
  Company Number: GB-GLAXOSMITHKLINE-B0971388A

PATIENT
  Age: 41 Year
  Sex: Male

DRUGS (1)
  1. LAMICTAL [Suspect]
     Indication: EPILEPSY
     Route: 048
     Dates: start: 20120701

REACTIONS (5)
  - Grand mal convulsion [Not Recovered/Not Resolved]
  - Splenomegaly [Unknown]
  - Insomnia [Unknown]
  - Hyperhidrosis [Unknown]
  - Lymphadenopathy [Unknown]
